FAERS Safety Report 5573588-5 (Version None)
Quarter: 2007Q4

REPORT INFORMATION
  Report Type: 
  Country: None (occurrence: None)
  Receive Date: 20071220
  Receipt Date: 20071212
  Transmission Date: 20080405
  Serious: Yes (Other)
  Sender: FDA-Public Use
  Company Number: 163-20785-07120701

PATIENT
  Age: 63 Year
  Sex: Male

DRUGS (6)
  1. THALOMID [Suspect]
     Indication: MULTIPLE MYELOMA
     Dosage: 50 - 200MG, DAILY, ORAL
     Route: 048
     Dates: start: 20051221, end: 20070101
  2. DEXAMETHASONE TAB [Concomitant]
  3. ENALAPRIL MALEATE [Concomitant]
  4. GLIPIZIDE [Concomitant]
  5. METOPROLOL TARTRATE [Concomitant]
  6. ALLOPURINOL [Concomitant]

REACTIONS (2)
  - NEUROPATHY [None]
  - SEPTIC NECROSIS [None]
